FAERS Safety Report 6524889-5 (Version None)
Quarter: 2009Q4

REPORT INFORMATION
  Report Type: 
  Country: None (occurrence: None)
  Receive Date: 20091230
  Receipt Date: 20091230
  Transmission Date: 20100525
  Serious: No
  Sender: FDA-Public Use
  Company Number: None

PATIENT
  Age: 28 Year
  Sex: Female
  Weight: 76.6579 kg

DRUGS (5)
  1. COLD REMEDY ORAL MIST [Suspect]
     Dosage: 3 HOURS APART, 2 DOSES
     Dates: start: 20091026, end: 20091026
  2. MULTI-VITAMIN [Concomitant]
  3. CHROMIUM PICOLINATE [Concomitant]
  4. VITAMIN B COMPLEX CAP [Concomitant]
  5. FISH OIL [Concomitant]

REACTIONS (2)
  - AGEUSIA [None]
  - PRODUCT TASTE ABNORMAL [None]
